FAERS Safety Report 4880397-9 (Version None)
Quarter: 2005Q4

REPORT INFORMATION
  Report Type: 
  Country: None (occurrence: None)
  Receive Date: 20051223
  Receipt Date: 20051013
  Transmission Date: 20060501
  Serious: No
  Sender: FDA-Public Use
  Company Number: 05P-163-0313583-00

PATIENT
  Age: 55 Year
  Sex: Female
  Weight: 81.6475 kg

DRUGS (14)
  1. HUMIRA [Suspect]
     Indication: RHEUMATOID ARTHRITIS
     Dosage: 40 MG, 1 IN 2 WK, SUBCUTANEOUS
     Route: 058
     Dates: start: 20050920, end: 20050925
  2. HUMIRA [Suspect]
     Indication: RHEUMATOID ARTHRITIS
     Dosage: 40 MG, 1 IN 2 WK, SUBCUTANEOUS
     Route: 058
     Dates: start: 20051005
  3. FOLIC ACID [Concomitant]
  4. URSODEOXYCHOLIC ACID [Concomitant]
  5. AMITRIPTYLINE HCL [Concomitant]
  6. DIFLUNISAL [Concomitant]
  7. CALCIUM GLUCONATE [Concomitant]
  8. ALENDRONATE SODIUM [Concomitant]
  9. TOCOPHEROL CONCENTRATE CAP [Concomitant]
  10. B-KOMPLEX ^LECIVA^ [Concomitant]
  11. MULTIVITAMIN [Concomitant]
  12. MILK THISTLE [Concomitant]
  13. GLUCOSAMINE W/CHONDROITIN SULFATES [Concomitant]
  14. COQ10 [Concomitant]

REACTIONS (4)
  - FATIGUE [None]
  - SINUSITIS [None]
  - STOMATITIS [None]
  - TOOTH INFECTION [None]
